FAERS Safety Report 5233285-2 (Version None)
Quarter: 2007Q1

REPORT INFORMATION
  Report Type: 
  Country: None (occurrence: None)
  Receive Date: 20061201
  Receipt Date: 20060921
  Transmission Date: 20070707
  Serious: No
  Sender: FDA-Public Use
  Company Number: 2006PV021725

PATIENT
  Age: 43 Year
  Sex: Female

DRUGS (7)
  1. BYETTA [Suspect]
     Indication: DRUG USE FOR UNKNOWN INDICATION
     Dosage: 5 MCG;SC
     Route: 058
     Dates: start: 20060725, end: 20060907
  2. AVANDAMET [Concomitant]
  3. LOTREL [Concomitant]
  4. POTASSIUM ACETATE [Concomitant]
  5. LASIX [Concomitant]
  6. METFORMIN HCL [Concomitant]
  7. HUMALOG MIX 75/25 [Concomitant]

REACTIONS (1)
  - DERMATITIS EXFOLIATIVE [None]
